FAERS Safety Report 7223655-5 (Version None)
Quarter: 2011Q1

REPORT INFORMATION
  Report Type: 
  Country: None (occurrence: None)
  Receive Date: 20110112
  Receipt Date: 20100923
  Transmission Date: 20110831
  Serious: No
  Sender: FDA-Public Use
  Company Number: US-ALLERGAN-1012354US

PATIENT
  Age: 55 Year
  Sex: Female

DRUGS (2)
  1. UNKNOWN NON-PRESERVATIVE EYE DROP [Concomitant]
     Indication: PAIN
     Dosage: 1 GTT, PRN
     Route: 047
  2. RESTASIS [Suspect]
     Indication: DRY EYE
     Dosage: 1 GTT, UNK
     Dates: start: 20100901

REACTIONS (4)
  - FOREIGN BODY SENSATION IN EYES [None]
  - EYE PRURITUS [None]
  - OCULAR HYPERAEMIA [None]
  - NAUSEA [None]
